FAERS Safety Report 14138201 (Version 2)
Quarter: 2018Q1

REPORT INFORMATION
  Report Type: Spontaneous
  Country: US (occurrence: US)
  Receive Date: 20171027
  Receipt Date: 20180313
  Transmission Date: 20180508
  Serious: No
  Sender: FDA-Public Use
  Company Number: US-ROCHE-1960322

PATIENT
  Sex: Female
  Weight: 59.02 kg

DRUGS (2)
  1. ALECENSA [Suspect]
     Active Substance: ALECTINIB HYDROCHLORIDE
     Indication: LUNG NEOPLASM MALIGNANT
     Route: 048
     Dates: start: 20170519
  2. ALECENSA [Suspect]
     Active Substance: ALECTINIB HYDROCHLORIDE
     Dosage: 4 CAPSULE TWICE A DAY
     Route: 048
     Dates: start: 20170522

REACTIONS (4)
  - Cough [Unknown]
  - Pollakiuria [Unknown]
  - Peripheral swelling [Unknown]
  - Constipation [Unknown]
